FAERS Safety Report 11867025 (Version 1)
Quarter: 2015Q4

REPORT INFORMATION
  Report Type: Spontaneous
  Country: US (occurrence: None)
  Receive Date: 20151223
  Receipt Date: 20151223
  Transmission Date: 20160305
  Serious: Yes (Death)
  Sender: FDA-Public Use
  Company Number: None

PATIENT
  Age: 71 Year
  Sex: Female

DRUGS (4)
  1. THIORIDAZINE 50MG AND 100MG [Suspect]
     Active Substance: THIORIDAZINE
     Indication: BIPOLAR DISORDER
     Dosage: YEARS
  2. LITHIUM CARBONATE 300MG AND 600MG [Suspect]
     Active Substance: LITHIUM CARBONATE
     Indication: BIPOLAR DISORDER
     Dosage: Q AM
  3. LITHIUM CARBONATE 300MG AND 600MG [Suspect]
     Active Substance: LITHIUM CARBONATE
     Indication: DEVELOPMENTAL DELAY
     Dosage: Q AM
  4. THIORIDAZINE 50MG AND 100MG [Suspect]
     Active Substance: THIORIDAZINE
     Indication: DEVELOPMENTAL DELAY
     Dosage: YEARS

REACTIONS (3)
  - Dyspnoea [None]
  - Myocardial infarction [None]
  - Cardiac arrest [None]

NARRATIVE: CASE EVENT DATE: 20131113
